FAERS Safety Report 9179098 (Version 2)
Quarter: 2013Q2

REPORT INFORMATION
  Report Type: Spontaneous
  Country: JP (occurrence: JP)
  Receive Date: 20130321
  Receipt Date: 20130404
  Transmission Date: 20140414
  Serious: Yes (Other)
  Sender: FDA-Public Use
  Company Number: JP-TEVA-392509ISR

PATIENT
  Sex: Female

DRUGS (3)
  1. CISPLATIN [Suspect]
  2. ZOLOFT [Suspect]
     Route: 048
  3. ANTI CANCER DRUG [Suspect]

REACTIONS (1)
  - Encephalitis [Recovering/Resolving]
